FAERS Safety Report 8510656-X (Version None)
Quarter: 2012Q3

REPORT INFORMATION
  Report Type: 
  Country: None (occurrence: None)
  Receive Date: 20120716
  Receipt Date: 20120709
  Transmission Date: 20120928
  Serious: Yes (Life-Threatening, Hospitalization, Other)
  Sender: FDA-Public Use
  Company Number: GB-009507513-1207GBR002958

PATIENT

DRUGS (7)
  1. LEVOMYCETIN [Concomitant]
  2. PRINIVIL [Suspect]
     Indication: HYPERTENSION
     Dosage: UNK, QD
     Route: 048
  3. OMEPRAZOLE [Concomitant]
  4. ZOPICLONE [Concomitant]
  5. ACETAMINOPHEN AND CODEINE PHOSPHATE [Concomitant]
  6. ERYTHROMYCIN [Concomitant]
  7. WARFARIN SODIUM [Concomitant]

REACTIONS (7)
  - DYSPNOEA [None]
  - OBSTRUCTIVE AIRWAYS DISORDER [None]
  - LIP SWELLING [None]
  - SWOLLEN TONGUE [None]
  - SWELLING FACE [None]
  - CARDIAC ARREST [None]
  - RESPIRATORY ARREST [None]
